FAERS Safety Report 10627254 (Version 2)
Quarter: 2015Q3

REPORT INFORMATION
  Report Type: Spontaneous
  Country: US (occurrence: US)
  Receive Date: 20141204
  Receipt Date: 20150701
  Transmission Date: 20151125
  Serious: Yes (Hospitalization, Other)
  Sender: FDA-Public Use
  Company Number: US-GLAXOSMITHKLINE-US2014030143

PATIENT
  Age: 59 Year
  Sex: Female

DRUGS (5)
  1. VENTOLIN HFA [Suspect]
     Active Substance: ALBUTEROL SULFATE
     Indication: CHRONIC OBSTRUCTIVE PULMONARY DISEASE
  2. VENTOLIN HFA [Suspect]
     Active Substance: ALBUTEROL SULFATE
     Indication: EMPHYSEMA
     Dosage: 2 PUFF(S), PRN
     Route: 055
     Dates: start: 2007
  3. REQUIP [Suspect]
     Active Substance: ROPINIROLE HYDROCHLORIDE
     Dosage: 2 MG, U
  4. REQUIP [Suspect]
     Active Substance: ROPINIROLE HYDROCHLORIDE
     Indication: RESTLESS LEGS SYNDROME
     Dosage: UNK, BID
  5. ADVAIR HFA [Suspect]
     Active Substance: FLUTICASONE PROPIONATE\SALMETEROL XINAFOATE
     Indication: CHRONIC OBSTRUCTIVE PULMONARY DISEASE

REACTIONS (5)
  - Hospitalisation [Unknown]
  - Dialysis [Unknown]
  - Life support [Unknown]
  - Cerebrovascular accident [Recovered/Resolved with Sequelae]
  - Hemiparesis [Not Recovered/Not Resolved]

NARRATIVE: CASE EVENT DATE: 200904
